FAERS Safety Report 7949116-3 (Version None)
Quarter: 2011Q4

REPORT INFORMATION
  Report Type: 
  Country: None (occurrence: None)
  Receive Date: 20111123
  Receipt Date: 20111110
  Transmission Date: 20120403
  Serious: Yes (Other)
  Sender: FDA-Public Use
  Company Number: 2011P1010027

PATIENT
  Sex: Male

DRUGS (1)
  1. CARBAMAZEPINE [Suspect]
     Indication: BIPOLAR DISORDER
     Dosage: 200 MG;BID
     Dates: start: 20111025

REACTIONS (5)
  - FATIGUE [None]
  - OFF LABEL USE [None]
  - NIGHT SWEATS [None]
  - DRY MOUTH [None]
  - MEMORY IMPAIRMENT [None]
